FAERS Safety Report 25243014 (Version 1)
Quarter: 2025Q2

REPORT INFORMATION
  Report Type: Report from Study
  Country: US (occurrence: US)
  Receive Date: 20250428
  Receipt Date: 20250428
  Transmission Date: 20250717
  Serious: Yes (Other)
  Sender: TAKEDA
  Company Number: US-TAKEDA-2025TUS025382

PATIENT
  Sex: Female
  Weight: 97.5 kg

DRUGS (19)
  1. LANADELUMAB [Suspect]
     Active Substance: LANADELUMAB
     Indication: Immune system disorder
     Dosage: 300 MILLIGRAM, Q2WEEKS
  2. LANADELUMAB [Suspect]
     Active Substance: LANADELUMAB
  3. LANADELUMAB [Suspect]
     Active Substance: LANADELUMAB
  4. SIMVASTATIN [Suspect]
     Active Substance: SIMVASTATIN
     Indication: Product used for unknown indication
  5. MOUNJARO [Concomitant]
     Active Substance: TIRZEPATIDE
  6. ICATIBANT [Concomitant]
     Active Substance: ICATIBANT ACETATE
  7. GLIMEPIRIDE [Concomitant]
     Active Substance: GLIMEPIRIDE
  8. PREVACID [Concomitant]
     Active Substance: LANSOPRAZOLE
  9. ATENOLOL [Concomitant]
     Active Substance: ATENOLOL
  10. JARDIANCE [Concomitant]
     Active Substance: EMPAGLIFLOZIN
  11. MELOXICAM [Concomitant]
     Active Substance: MELOXICAM
  12. METOPROLOL TARTRATE [Concomitant]
     Active Substance: METOPROLOL TARTRATE
  13. GVOKE [Concomitant]
     Active Substance: GLUCAGON
  14. TOUJEO MAX [Concomitant]
     Active Substance: INSULIN GLARGINE
  15. BIOTIN [Concomitant]
     Active Substance: BIOTIN
  16. LOSARTAN POTASSIUM [Concomitant]
     Active Substance: LOSARTAN POTASSIUM
  17. VITAMIN K [Concomitant]
     Active Substance: PHYTONADIONE
  18. HYDROCHLOROTHIAZIDE [Concomitant]
     Active Substance: HYDROCHLOROTHIAZIDE
  19. VITAMIN D3 [Concomitant]
     Active Substance: CHOLECALCIFEROL

REACTIONS (3)
  - Colitis [Unknown]
  - Gait disturbance [Unknown]
  - Myalgia [Unknown]
